FAERS Safety Report 7333195-0 (Version None)
Quarter: 2011Q1

REPORT INFORMATION
  Report Type: 
  Country: None (occurrence: None)
  Receive Date: 20110222
  Receipt Date: 20110208
  Transmission Date: 20110831
  Serious: Yes (Life-Threatening)
  Sender: FDA-Public Use
  Company Number: 2011AP000240

PATIENT
  Age: 74 Year
  Sex: Male

DRUGS (11)
  1. CANDESARTAN CILEXETIL [Concomitant]
  2. CLARITHROMYCIN [Concomitant]
  3. FELODIPINE [Concomitant]
  4. SERTRALINE HYDROCHLORIDE [Suspect]
     Indication: DEPRESSION
     Route: 048
     Dates: start: 20101201, end: 20110125
  5. METRONIDAZOLE [Suspect]
     Indication: PRODUCT USED FOR UNKNOWN INDICATION
     Dosage: 500 MG
     Route: 042
     Dates: start: 20110125, end: 20110125
  6. ATORVASTATIN (ATORVASTATIN) [Concomitant]
  7. BISOPROLOL FUMARATE [Concomitant]
  8. MEROPENEM [Suspect]
     Indication: PRODUCT USED FOR UNKNOWN INDICATION
     Dosage: 500 MG
     Route: 042
     Dates: start: 20110125, end: 20110125
  9. ISOSORBIDE MONONITRATE [Concomitant]
  10. NICORANDIL (NICORANDIL) [Concomitant]
  11. ASPIRIN [Concomitant]

REACTIONS (13)
  - RENAL FAILURE [None]
  - HEPATOMEGALY [None]
  - JAUNDICE [None]
  - INTERNATIONAL NORMALISED RATIO INCREASED [None]
  - GENERAL PHYSICAL HEALTH DETERIORATION [None]
  - RESPIRATORY FAILURE [None]
  - DYSPNOEA [None]
  - PAIN [None]
  - SEPSIS [None]
  - CARDIAC FAILURE [None]
  - ACUTE HEPATIC FAILURE [None]
  - LIVER FUNCTION TEST ABNORMAL [None]
  - CONFUSIONAL STATE [None]
